FAERS Safety Report 6498926-0 (Version None)
Quarter: 2009Q4

REPORT INFORMATION
  Report Type: 
  Country: None (occurrence: None)
  Receive Date: 20091215
  Receipt Date: 20091210
  Transmission Date: 20100525
  Serious: Yes (Life-Threatening, Hospitalization)
  Sender: FDA-Public Use
  Company Number: NL-PFIZER INC-2009309574

PATIENT

DRUGS (4)
  1. IDARUBICIN HCL [Suspect]
  2. CYTARABINE [Suspect]
  3. GEMTUZUMAB OZOGAMICIN [Suspect]
  4. ETOPOSIDE [Suspect]

REACTIONS (1)
  - RECTAL HAEMORRHAGE [None]
